FAERS Safety Report 16326205 (Version 1)
Quarter: 2019Q2

REPORT INFORMATION
  Report Type: Spontaneous
  Country: MX (occurrence: MX)
  Receive Date: 20190517
  Receipt Date: 20190517
  Transmission Date: 20190711
  Serious: Yes (Hospitalization, Other)
  Sender: FDA-Public Use
  Company Number: MX-ASTRAZENECA-2019SE73547

PATIENT
  Age: 57 Year
  Sex: Female
  Weight: 75 kg

DRUGS (5)
  1. BIFIDOBACTERIUM LONGUM [Concomitant]
     Active Substance: BIFIDOBACTERIUM LONGUM
     Indication: GASTRITIS
     Dosage: DAILY
     Route: 048
  2. NEXIUM MUPS [Suspect]
     Active Substance: ESOMEPRAZOLE
     Indication: GASTRITIS
     Route: 048
     Dates: start: 2011
  3. PROLIA [Concomitant]
     Active Substance: DENOSUMAB
     Indication: OSTEOPOROSIS
     Dosage: 60.0MG UNKNOWN
     Route: 030
     Dates: start: 2017
  4. CALTRATE [Concomitant]
     Active Substance: CALCIUM CARBONATE
     Indication: OSTEOPOROSIS
     Dosage: DAILY
     Dates: start: 2017
  5. DIMETICONE [Concomitant]
     Active Substance: DIMETHICONE
     Indication: COLITIS
     Dosage: TWO TIMES A DAY
     Route: 048

REACTIONS (7)
  - Fall [Not Recovered/Not Resolved]
  - Spinal column injury [Not Recovered/Not Resolved]
  - Road traffic accident [Unknown]
  - Coccydynia [Not Recovered/Not Resolved]
  - Back injury [Not Recovered/Not Resolved]
  - Osteoporosis [Not Recovered/Not Resolved]
  - Weight increased [Not Recovered/Not Resolved]

NARRATIVE: CASE EVENT DATE: 2016
